FAERS Safety Report 4753360-6 (Version None)
Quarter: 2005Q3

REPORT INFORMATION
  Report Type: 
  Country: None (occurrence: None)
  Receive Date: 20050824
  Receipt Date: 20050812
  Transmission Date: 20060218
  Serious: Yes (Hospitalization, Other)
  Sender: FDA-Public Use
  Company Number: KII-2005-0017982

PATIENT
  Age: 28 Year
  Sex: Male

DRUGS (5)
  1. OXYCONTIN [Suspect]
     Dosage: ORAL
     Route: 048
  2. BENZODIAZEPINE DERIVATIVES () [Suspect]
     Dosage: ORAL
     Route: 048
  3. SSRI () [Suspect]
     Dosage: ORAL
     Route: 048
  4. ETHANOL (ETHANOL) [Suspect]
     Dosage: ORAL
     Route: 048
  5. SYNTHROID [Suspect]
     Dosage: ORAL
     Route: 048

REACTIONS (7)
  - BLOOD THYROID STIMULATING HORMONE INCREASED [None]
  - DEPRESSED LEVEL OF CONSCIOUSNESS [None]
  - GUN SHOT WOUND [None]
  - MULTIPLE DRUG OVERDOSE [None]
  - MYALGIA [None]
  - SELF INJURIOUS BEHAVIOUR [None]
  - TRI-IODOTHYRONINE INCREASED [None]
